FAERS Safety Report 9653631 (Version 1)
Quarter: 2013Q4

REPORT INFORMATION
  Report Type: Spontaneous
  Country: DE (occurrence: None)
  Receive Date: 20131028
  Receipt Date: 20131028
  Transmission Date: 20140711
  Serious: No
  Sender: FDA-Public Use
  Company Number: 13MRZ-00162

PATIENT
  Sex: Female

DRUGS (1)
  1. AETHOXYSKLEROL [Suspect]
     Dosage: SOLUTION FOR INJECTION
     Dates: start: 2013, end: 2013

REACTIONS (1)
  - Anaphylactic reaction [None]
